FAERS Safety Report 9855669 (Version 4)
Quarter: 2016Q3

REPORT INFORMATION
  Report Type: Spontaneous
  Country: US (occurrence: US)
  Receive Date: 20140130
  Receipt Date: 20160825
  Transmission Date: 20161109
  Serious: Yes (Life-Threatening, Hospitalization)
  Sender: FDA-Public Use
  Company Number: US-BAYER-2014-014126

PATIENT
  Age: 26 Year
  Sex: Female

DRUGS (5)
  1. PITOCIN [Concomitant]
     Active Substance: OXYTOCIN
  2. LORTAB [Concomitant]
     Active Substance: ACETAMINOPHEN\HYDROCODONE BITARTRATE
     Dosage: 5 MG, UNK
  3. MIRENA [Suspect]
     Active Substance: LEVONORGESTREL
     Indication: CONTRACEPTION
     Dosage: 20 MCG/24HR, CONT
     Route: 015
     Dates: start: 20061005, end: 20120131
  4. MIRENA [Suspect]
     Active Substance: LEVONORGESTREL
     Indication: MENORRHAGIA
  5. TORADOL [Concomitant]
     Active Substance: KETOROLAC TROMETHAMINE
     Dosage: 60 MG, UNK
     Route: 030

REACTIONS (11)
  - Anxiety [None]
  - Medical device pain [None]
  - Depression [None]
  - General physical health deterioration [None]
  - Abdominal pain lower [None]
  - Pain [None]
  - Anhedonia [None]
  - Fear [None]
  - Emotional distress [None]
  - Dyspareunia [None]
  - Uterine perforation [None]

NARRATIVE: CASE EVENT DATE: 200610
